FAERS Safety Report 20536010 (Version 2)
Quarter: 2022Q4

REPORT INFORMATION
  Report Type: Spontaneous
  Country: US (occurrence: US)
  Receive Date: 20220302
  Receipt Date: 20221018
  Transmission Date: 20230112
  Serious: Yes (Other)
  Sender: FDA-Public Use
  Company Number: US-BRISTOL-MYERS SQUIBB COMPANY-BMS-2022-030173

PATIENT
  Age: 83 Year
  Sex: Male
  Weight: 78.4 kg

DRUGS (2)
  1. OPDIVO [Suspect]
     Active Substance: NIVOLUMAB
     Indication: Sarcomatoid mesothelioma
     Dosage: UNK, Q3WK
     Route: 065
     Dates: start: 20210304
  2. YERVOY [Suspect]
     Active Substance: IPILIMUMAB
     Indication: Sarcomatoid mesothelioma
     Dosage: UNK UNK, Q3WK
     Route: 065
     Dates: start: 20210304

REACTIONS (15)
  - Malignant neoplasm progression [Unknown]
  - Ascites [Unknown]
  - Pleural effusion [Unknown]
  - Lethargy [Unknown]
  - Decreased appetite [Unknown]
  - Erythema [Unknown]
  - Dyspnoea [Unknown]
  - Urinary incontinence [Unknown]
  - Peripheral swelling [Unknown]
  - Confusional state [Unknown]
  - Troponin increased [Unknown]
  - Asthenia [Unknown]
  - Pulmonary mass [Unknown]
  - Blood pressure fluctuation [Unknown]
  - Pain [Unknown]

NARRATIVE: CASE EVENT DATE: 20210401
